FAERS Safety Report 19929419 (Version 1)
Quarter: 2021Q4

REPORT INFORMATION
  Report Type: Spontaneous
  Country: FR (occurrence: FR)
  Receive Date: 20211007
  Receipt Date: 20211007
  Transmission Date: 20220303
  Serious: Yes (Congenital Anomaly)
  Sender: FDA-Public Use
  Company Number: FR-ABBVIE-21K-056-4108923-00

PATIENT
  Sex: Female

DRUGS (1)
  1. VALPROATE SODIUM [Suspect]
     Active Substance: VALPROATE SODIUM
     Indication: Maternal exposure timing unspecified
     Route: 064

REACTIONS (7)
  - Bruxism [Unknown]
  - Autoimmune encephalopathy [Unknown]
  - Behaviour disorder [Unknown]
  - Somnambulism [Unknown]
  - Myoclonus [Unknown]
  - Epilepsy [Unknown]
  - Foetal exposure during pregnancy [Unknown]
